FAERS Safety Report 12742031 (Version 2)
Quarter: 2016Q3

REPORT INFORMATION
  Report Type: Spontaneous
  Country: GB (occurrence: GB)
  Receive Date: 20160914
  Receipt Date: 20160920
  Transmission Date: 20161109
  Serious: Yes (Other)
  Sender: FDA-Public Use
  Company Number: GB-TEVA-691054ACC

PATIENT
  Sex: Female

DRUGS (2)
  1. COPAXONE [Suspect]
     Active Substance: GLATIRAMER ACETATE
     Dosage: 40 MG/ML
     Route: 065
     Dates: end: 20160907
  2. COPAXONE [Suspect]
     Active Substance: GLATIRAMER ACETATE
     Dosage: 20 MG/ML
     Route: 065
     Dates: end: 2015

REACTIONS (13)
  - Cardiac disorder [Unknown]
  - Chest discomfort [Unknown]
  - Pain in extremity [Unknown]
  - Hypopnoea [Recovered/Resolved]
  - Cyanosis [Recovered/Resolved]
  - Pallor [Unknown]
  - Neck pain [Unknown]
  - Pain in jaw [Unknown]
  - Nasopharyngitis [Recovered/Resolved]
  - Dyspnoea [Unknown]
  - Presyncope [Unknown]
  - Injection site reaction [Recovered/Resolved]
  - Malaise [Unknown]
